FAERS Safety Report 25712568 (Version 1)
Quarter: 2025Q3

REPORT INFORMATION
  Report Type: Spontaneous
  Country: EU (occurrence: EU)
  Receive Date: 20250821
  Receipt Date: 20250821
  Transmission Date: 20251021
  Serious: Yes (Other)
  Sender: MYLAN
  Company Number: EU-GRUNENTHAL-2025-112128

PATIENT
  Age: 29 Year
  Sex: Female

DRUGS (20)
  1. TRAMADOL [Suspect]
     Active Substance: TRAMADOL
     Indication: Pain
     Dosage: 500 MILLIGRAM, QD (500 MILLIGRAM, 1/DAY)
  2. TRAMADOL [Suspect]
     Active Substance: TRAMADOL
     Dosage: 500 MILLIGRAM, QD (500 MILLIGRAM, 1/DAY)
  3. TRAMADOL [Suspect]
     Active Substance: TRAMADOL
     Dosage: 500 MILLIGRAM, QD (500 MILLIGRAM, 1/DAY)
     Route: 065
  4. TRAMADOL [Suspect]
     Active Substance: TRAMADOL
     Dosage: 500 MILLIGRAM, QD (500 MILLIGRAM, 1/DAY)
     Route: 065
  5. TRAMADOL [Suspect]
     Active Substance: TRAMADOL
     Dosage: 200 MILLIGRAM, QD (200 MILLIGRAM, 1/DAY)
  6. TRAMADOL [Suspect]
     Active Substance: TRAMADOL
     Dosage: 200 MILLIGRAM, QD (200 MILLIGRAM, 1/DAY)
  7. TRAMADOL [Suspect]
     Active Substance: TRAMADOL
     Dosage: 200 MILLIGRAM, QD (200 MILLIGRAM, 1/DAY)
     Route: 065
  8. TRAMADOL [Suspect]
     Active Substance: TRAMADOL
     Dosage: 200 MILLIGRAM, QD (200 MILLIGRAM, 1/DAY)
     Route: 065
  9. TRAMADOL [Suspect]
     Active Substance: TRAMADOL
     Dosage: 400 MILLIGRAM, QD (400 MILLIGRAM, 1/DAY)
  10. TRAMADOL [Suspect]
     Active Substance: TRAMADOL
     Dosage: 400 MILLIGRAM, QD (400 MILLIGRAM, 1/DAY)
     Route: 065
  11. TRAMADOL [Suspect]
     Active Substance: TRAMADOL
     Dosage: 400 MILLIGRAM, QD (400 MILLIGRAM, 1/DAY)
  12. TRAMADOL [Suspect]
     Active Substance: TRAMADOL
     Dosage: 400 MILLIGRAM, QD (400 MILLIGRAM, 1/DAY)
     Route: 065
  13. MORPHINE [Concomitant]
     Active Substance: MORPHINE
     Indication: Pain
  14. MORPHINE [Concomitant]
     Active Substance: MORPHINE
     Route: 065
  15. MORPHINE [Concomitant]
     Active Substance: MORPHINE
     Route: 065
  16. MORPHINE [Concomitant]
     Active Substance: MORPHINE
  17. OXYCODONE [Concomitant]
     Active Substance: OXYCODONE
     Indication: Pain
  18. OXYCODONE [Concomitant]
     Active Substance: OXYCODONE
     Route: 065
  19. OXYCODONE [Concomitant]
     Active Substance: OXYCODONE
     Route: 065
  20. OXYCODONE [Concomitant]
     Active Substance: OXYCODONE

REACTIONS (6)
  - Epilepsy [Unknown]
  - Drug dependence [Unknown]
  - Drug tolerance [Unknown]
  - Drug effect less than expected [Unknown]
  - Drug titration error [Unknown]
  - Intentional overdose [Unknown]
